FAERS Safety Report 24793876 (Version 1)
Quarter: 2024Q4

REPORT INFORMATION
  Report Type: Spontaneous
  Country: US (occurrence: US)
  Receive Date: 20241231
  Receipt Date: 20241231
  Transmission Date: 20250115
  Serious: No
  Sender: ALKEM
  Company Number: None

PATIENT
  Age: 58 Year
  Sex: Female

DRUGS (5)
  1. TACROLIMUS [Suspect]
     Active Substance: TACROLIMUS
     Indication: Lichen planopilaris
     Dosage: UNK, BID (ON WEEKENDS)
     Route: 061
  2. BETAMETHASONE DIPROPIONATE [Concomitant]
     Active Substance: BETAMETHASONE DIPROPIONATE
     Indication: Lichen planopilaris
     Dosage: UNK, BID (0.05 PERCENT CREAM BID ON THE BODY)
     Route: 061
  3. CLOBETASOL PROPIONATE [Concomitant]
     Active Substance: CLOBETASOL PROPIONATE
     Indication: Lichen planopilaris
     Dosage: UNK (0.05 PERCENT SOLUTION)
     Route: 061
  4. DOXYCYCLINE [Concomitant]
     Active Substance: DOXYCYCLINE
     Indication: Lichen planopilaris
     Dosage: 20 MILLIGRAM, BID (EVERY 12 HOU)
     Route: 048
  5. MINOXIDIL [Concomitant]
     Active Substance: MINOXIDIL
     Indication: Lichen planopilaris
     Dosage: UNK, BID (5 PERCENT SOLUTION TWICE DAILY)
     Route: 061

REACTIONS (1)
  - Skin irritation [Recovered/Resolved]
